FAERS Safety Report 13075563 (Version 1)
Quarter: 2016Q4

REPORT INFORMATION
  Report Type: Spontaneous
  Country: US (occurrence: US)
  Receive Date: 20161229
  Receipt Date: 20161229
  Transmission Date: 20170207
  Serious: No
  Sender: FDA-Public Use
  Company Number: None

PATIENT
  Age: 93 Year
  Sex: Female
  Weight: 55.34 kg

DRUGS (7)
  1. SYNTHROID [Suspect]
     Active Substance: LEVOTHYROXINE SODIUM
     Indication: DRUG THERAPY
     Dosage: 1 PILL 1 TIME MORNING
     Dates: start: 2015, end: 20161213
  2. LISNOP/HCTZ [Concomitant]
  3. CITALOPRAM [Concomitant]
     Active Substance: CITALOPRAM HYDROBROMIDE
  4. FAMOTIDINE. [Concomitant]
     Active Substance: FAMOTIDINE
  5. TRAMADOL. [Concomitant]
     Active Substance: TRAMADOL
  6. ENTERIC ASPIRIN [Concomitant]
     Active Substance: ASPIRIN
  7. THERAGRAN-M [Concomitant]
     Active Substance: VITAMINS

REACTIONS (1)
  - Alopecia [None]
